FAERS Safety Report 7880258-7 (Version None)
Quarter: 2011Q4

REPORT INFORMATION
  Report Type: 
  Country: None (occurrence: None)
  Receive Date: 20111101
  Receipt Date: 20111028
  Transmission Date: 20120403
  Serious: Yes (Hospitalization, Other)
  Sender: FDA-Public Use
  Company Number: US-SANTEN INC.-INC-11-000057

PATIENT
  Age: 70 Year
  Sex: Female

DRUGS (6)
  1. BUPOPRION [Concomitant]
  2. TOPICAL BRIMONIDINE [Concomitant]
  3. LISINOPRIL [Concomitant]
  4. HYDROCHLOROTHIAZIDE [Concomitant]
  5. SIMVASTATIN [Concomitant]
  6. TIMOLOL MALEATE [Suspect]
     Route: 047

REACTIONS (1)
  - SICK SINUS SYNDROME [None]
